FAERS Safety Report 24672267 (Version 1)
Quarter: 2024Q4

REPORT INFORMATION
  Report Type: Report from Study
  Country: CH (occurrence: CH)
  Receive Date: 20241127
  Receipt Date: 20241127
  Transmission Date: 20250115
  Serious: Yes (Hospitalization)
  Sender: ABBVIE
  Company Number: CH-ABBVIE-6010177

PATIENT
  Age: 80 Year
  Sex: Male

DRUGS (5)
  1. CARBIDOPA\LEVODOPA [Suspect]
     Active Substance: CARBIDOPA\LEVODOPA
     Indication: Parkinson^s disease
     Dosage: MD: 7ML, CRD: 2.7 ML/H, ED: 1.0 ML, CRN: 2.0 ML/H 24H THERAPY
     Route: 050
     Dates: start: 20241025, end: 20241118
  2. CARBIDOPA\LEVODOPA [Suspect]
     Active Substance: CARBIDOPA\LEVODOPA
     Dosage: FREQUENCY TEXT: 24H THERAPY
     Route: 050
     Dates: start: 20220607
  3. CARBIDOPA\LEVODOPA [Suspect]
     Active Substance: CARBIDOPA\LEVODOPA
     Dosage: MD: 7ML, CRD: 2.7 ML/H, ED: 0.5 ML, CRN: 2.0 ML/H FREQUENCY TEXT: 24H THERAPY
     Route: 050
     Dates: start: 20241118, end: 20241119
  4. BENSERAZIDE HYDROCHLORIDE\LEVODOPA [Concomitant]
     Active Substance: BENSERAZIDE HYDROCHLORIDE\LEVODOPA
     Indication: Product used for unknown indication
     Dosage: FREQUENCY TEXT: AT 03:00, 06:00, THEN EVERY 2 HOURS
     Route: 048
     Dates: start: 20241119
  5. clozapine eg [Concomitant]
     Indication: Confusional state
     Dates: start: 20241120

REACTIONS (8)
  - Intentional medical device removal by patient [Recovered/Resolved]
  - Agitation [Recovering/Resolving]
  - Intentional medical device removal by patient [Recovered/Resolved]
  - Hallucination [Not Recovered/Not Resolved]
  - Dyskinesia [Not Recovered/Not Resolved]
  - Medication error [Recovered/Resolved]
  - Confusional state [Not Recovered/Not Resolved]
  - Device breakage [Recovered/Resolved]

NARRATIVE: CASE EVENT DATE: 20241101
